FAERS Safety Report 4328569-6 (Version None)
Quarter: 2004Q1

REPORT INFORMATION
  Report Type: 
  Country: None (occurrence: None)
  Receive Date: 20040319
  Receipt Date: 20031208
  Transmission Date: 20041129
  Serious: No
  Sender: FDA-Public Use
  Company Number: US-JNJFOC-20031202210

PATIENT
  Age: 26 Year
  Sex: Female
  Weight: 68.0396 kg

DRUGS (1)
  1. ORTHO EVRA [Suspect]
     Indication: CONTRACEPTION
     Dosage: 1 DOSE(S), TRANSDERMAL
     Route: 062
     Dates: start: 20031207, end: 20031208

REACTIONS (6)
  - DIZZINESS [None]
  - DYSPNOEA [None]
  - EXPOSURE TO NOISE [None]
  - MIGRAINE [None]
  - NAUSEA [None]
  - PHOTOSENSITIVITY REACTION [None]
